FAERS Safety Report 23284851 (Version 1)
Quarter: 2023Q4

REPORT INFORMATION
  Report Type: Spontaneous
  Country: CN (occurrence: CN)
  Receive Date: 20231211
  Receipt Date: 20231211
  Transmission Date: 20240110
  Serious: Yes (Other)
  Sender: FDA-Public Use
  Company Number: CN-009507513-2312CHN003877

PATIENT
  Age: 53 Year
  Sex: Female
  Weight: 62 kg

DRUGS (5)
  1. EMEND [Suspect]
     Active Substance: APREPITANT
     Indication: Chemotherapy
     Dosage: 125 MG, QD, ORAL
     Route: 048
     Dates: start: 20231106
  2. EMEND [Suspect]
     Active Substance: APREPITANT
     Dosage: 80 MG, QD, ORAL
     Route: 048
     Dates: start: 20231107
  3. EMEND [Suspect]
     Active Substance: APREPITANT
     Dosage: 80 MG, QD, ORAL
     Route: 048
     Dates: start: 20231108
  4. CARBOPLATIN [Suspect]
     Active Substance: CARBOPLATIN
     Indication: Chemotherapy
     Dosage: 660 MG, QD, IV DRIP
     Route: 041
     Dates: start: 20231106, end: 20231106
  5. DEXTROSE [Concomitant]
     Active Substance: DEXTROSE\DEXTROSE MONOHYDRATE
     Indication: Medication dilution
     Dosage: 500 ML, QD, IV DRIP
     Route: 041
     Dates: start: 20231106, end: 20231106

REACTIONS (1)
  - Myelosuppression [Recovering/Resolving]

NARRATIVE: CASE EVENT DATE: 20231116
